FAERS Safety Report 4744530-1 (Version None)
Quarter: 2005Q3

REPORT INFORMATION
  Report Type: 
  Country: None (occurrence: None)
  Receive Date: 20050811
  Receipt Date: 20050727
  Transmission Date: 20060218
  Serious: Yes (Hospitalization)
  Sender: FDA-Public Use
  Company Number: 2005-ES-00182ES

PATIENT
  Age: 39 Year
  Sex: Male
  Weight: 58 kg

DRUGS (8)
  1. TIPRANAVIR + RITONAVIR CO-ADMIN (TIPRANAVIR W/RITONAVIR) [Suspect]
     Indication: HIV INFECTION
     Dosage: TIPRANAVIR 1000MG + TITONAVIR 400MG, PO
     Route: 048
     Dates: start: 20050510, end: 20050605
  2. COCAINE (COCAINE) [Suspect]
  3. DOBUPAL (VENLAFAXINE HYDROCHLORIDE) [Concomitant]
  4. DORKEN (DORKEN) [Concomitant]
  5. METHADONE HCL [Concomitant]
  6. LAMIVUDINE [Concomitant]
  7. TENOFOVIR (TENOFOVIR) [Concomitant]
  8. T-20 (ENFUVIRTIDE) [Concomitant]

REACTIONS (2)
  - DRUG ABUSER [None]
  - PSYCHOTIC DISORDER [None]
